FAERS Safety Report 8489510-8 (Version None)
Quarter: 2012Q3

REPORT INFORMATION
  Report Type: 
  Country: None (occurrence: None)
  Receive Date: 20120705
  Receipt Date: 20120702
  Transmission Date: 20120928
  Serious: No
  Sender: FDA-Public Use
  Company Number: US-BAYER-2012-065572

PATIENT
  Age: 39 Year
  Sex: Female

DRUGS (1)
  1. MIRENA [Suspect]
     Indication: CONTRACEPTION
     Dosage: 20 MCG/24HR, CONT
     Route: 015
     Dates: start: 20080301

REACTIONS (5)
  - BACK PAIN [None]
  - ABDOMINAL PAIN LOWER [None]
  - MENORRHAGIA [None]
  - POLYMENORRHOEA [None]
  - HYPOMENORRHOEA [None]
